FAERS Safety Report 21132548 (Version 1)
Quarter: 2022Q3

REPORT INFORMATION
  Report Type: Report from Study
  Country: EG (occurrence: EG)
  Receive Date: 20220726
  Receipt Date: 20220726
  Transmission Date: 20221026
  Serious: Yes (Other)
  Sender: FDA-Public Use
  Company Number: EG-NOVARTISPH-NVSC2022EG167770

PATIENT
  Sex: Female

DRUGS (3)
  1. GLIVEC [Suspect]
     Active Substance: IMATINIB MESYLATE
     Indication: Chronic myeloid leukaemia
     Dosage: 500 MG, QD
     Route: 048
     Dates: start: 2010, end: 202204
  2. CALCIUM [Concomitant]
     Active Substance: CALCIUM
     Indication: Bone pain
     Dosage: 1 DOSAGE FORM, QD (1 TAB/DAY) DATE OF TREATMENT  A WHILE AGO FOR LESS THAN ONE MONTH)
     Route: 065
  3. CALCIUM [Concomitant]
     Active Substance: CALCIUM
     Indication: Fatigue

REACTIONS (2)
  - Abortion [Recovered/Resolved]
  - Maternal exposure during pregnancy [Unknown]
